FAERS Safety Report 14579245 (Version 1)
Quarter: 2018Q1

REPORT INFORMATION
  Report Type: Spontaneous
  Country: GB (occurrence: GB)
  Receive Date: 20180227
  Receipt Date: 20180227
  Transmission Date: 20180509
  Serious: Yes (Other)
  Sender: FDA-Public Use
  Company Number: GB-OTSUKA-DJ20061681

PATIENT

DRUGS (3)
  1. ABILIFY [Suspect]
     Active Substance: ARIPIPRAZOLE
     Indication: TOURETTE^S DISORDER
     Route: 048
     Dates: start: 20060622, end: 20060622
  2. ST JOHN WORT [Concomitant]
     Route: 065
  3. DIAZEPAM. [Concomitant]
     Active Substance: DIAZEPAM
     Route: 065

REACTIONS (4)
  - Influenza [Unknown]
  - Fatigue [Unknown]
  - Myalgia [Unknown]
  - Dysarthria [Unknown]

NARRATIVE: CASE EVENT DATE: 20060622
